FAERS Safety Report 22642059 (Version 1)
Quarter: 2023Q2

REPORT INFORMATION
  Report Type: Spontaneous
  Country: GB (occurrence: GB)
  Receive Date: 20230626
  Receipt Date: 20230626
  Transmission Date: 20230721
  Serious: Yes (Other)
  Sender: FDA-Public Use
  Company Number: None

PATIENT
  Age: 74 Year
  Sex: Female
  Weight: 72.57 kg

DRUGS (1)
  1. LEVOTHYROXINE [Suspect]
     Active Substance: LEVOTHYROXINE
     Indication: Hypothyroidism
     Dosage: 100MCGS
     Route: 048
     Dates: start: 20210605

REACTIONS (7)
  - Blood thyroid stimulating hormone increased [Unknown]
  - Eye swelling [Unknown]
  - Dry skin [Unknown]
  - Alopecia [Unknown]
  - Nail disorder [Unknown]
  - Hypothyroidism [Unknown]
  - Condition aggravated [Unknown]
